FAERS Safety Report 13877338 (Version 8)
Quarter: 2018Q2

REPORT INFORMATION
  Report Type: Report from Study
  Country: US (occurrence: US)
  Receive Date: 20170817
  Receipt Date: 20180528
  Transmission Date: 20180711
  Serious: Yes (Hospitalization, Other)
  Sender: FDA-Public Use
  Company Number: PHEH2017US025881

PATIENT
  Age: 63 Year
  Sex: Male
  Weight: 92.63 kg

DRUGS (2)
  1. GABAPENTIN. [Suspect]
     Active Substance: GABAPENTIN
     Indication: PRODUCT USED FOR UNKNOWN INDICATION
     Route: 065
  2. ENTRESTO [Suspect]
     Active Substance: SACUBITRIL\VALSARTAN
     Indication: CARDIAC FAILURE
     Dosage: 100 MG (49MG SACUBITRIL/51MG VALSARTAN), BID
     Route: 048

REACTIONS (13)
  - Blood pressure abnormal [Unknown]
  - Loss of consciousness [Unknown]
  - Feeling abnormal [Recovering/Resolving]
  - Peripheral arterial occlusive disease [Unknown]
  - Dizziness [Recovering/Resolving]
  - End stage renal disease [Unknown]
  - Weight decreased [Unknown]
  - Overdose [Unknown]
  - Chills [Unknown]
  - Nasopharyngitis [Unknown]
  - Malaise [Recovering/Resolving]
  - Bronchitis [Recovered/Resolved]
  - Abdominal discomfort [Recovering/Resolving]

NARRATIVE: CASE EVENT DATE: 20170906
